FAERS Safety Report 13702164 (Version 1)
Quarter: 2017Q2

REPORT INFORMATION
  Report Type: Spontaneous
  Country: AT (occurrence: AT)
  Receive Date: 20170629
  Receipt Date: 20170629
  Transmission Date: 20170830
  Serious: Yes (Other)
  Sender: FDA-Public Use
  Company Number: AT-ROCHE-1952447

PATIENT
  Age: 70 Year
  Sex: Female

DRUGS (4)
  1. CETUXIMAB. [Concomitant]
     Active Substance: CETUXIMAB
     Route: 065
     Dates: start: 201706
  2. CISPLATIN. [Concomitant]
     Active Substance: CISPLATIN
     Route: 065
     Dates: start: 201706
  3. ERIVEDGE [Suspect]
     Active Substance: VISMODEGIB
     Indication: BASAL CELL CARCINOMA
     Route: 065
     Dates: start: 201602, end: 201705
  4. FLUOROURACIL. [Concomitant]
     Active Substance: FLUOROURACIL
     Route: 065
     Dates: start: 201706

REACTIONS (4)
  - Squamous cell carcinoma [Unknown]
  - Lung squamous cell carcinoma metastatic [Unknown]
  - Basal cell carcinoma [Unknown]
  - Diffuse alopecia [Unknown]

NARRATIVE: CASE EVENT DATE: 201704
